FAERS Safety Report 6911397-2 (Version None)
Quarter: 2010Q3

REPORT INFORMATION
  Report Type: 
  Country: None (occurrence: None)
  Receive Date: 20100806
  Receipt Date: 20100726
  Transmission Date: 20110219
  Serious: Yes (Death, Hospitalization, Other)
  Sender: FDA-Public Use
  Company Number: JP-PFIZER INC-2010054792

PATIENT
  Age: 65 Year
  Sex: Female
  Weight: 39 kg

DRUGS (12)
  1. GABAPEN [Suspect]
     Indication: CANCER PAIN
     Dosage: 400 MG, 1X/DAY
     Route: 048
     Dates: start: 20100426, end: 20100430
  2. RABEPRAZOLE SODIUM [Concomitant]
     Dosage: 10 MG, 1X/DAY
     Route: 048
     Dates: start: 20100422, end: 20100428
  3. GASMOTIN [Concomitant]
     Dosage: 5 MG, 3X/DAY
     Route: 048
     Dates: start: 20100422, end: 20100428
  4. MAGNESIUM OXIDE [Concomitant]
     Dosage: 2 G, DAY
     Dates: start: 20100422, end: 20100428
  5. PANTOSIN [Concomitant]
     Dosage: 2 G, 3X/DAY
     Route: 048
     Dates: start: 20100422, end: 20100428
  6. HOCHUUEKKITOU [Concomitant]
     Dosage: UNK, 3X/DAY
     Route: 048
     Dates: start: 20100422, end: 20100428
  7. ZYRTEC [Concomitant]
     Dosage: 10 MG, 1X/DAY
     Route: 048
     Dates: start: 20100422, end: 20100428
  8. LASIX [Concomitant]
     Dosage: 20 MG, 1X/DAY
     Route: 048
     Dates: start: 20100422, end: 20100428
  9. LOXONIN [Concomitant]
     Dosage: 50 MG, 1X/DAY
     Route: 062
     Dates: start: 20100422
  10. VOLTAREN [Concomitant]
     Dosage: 25 MG, 3X/DAY
     Route: 054
     Dates: start: 20100422
  11. FENTANYL [Concomitant]
     Dosage: UNK
  12. OXINORM [Concomitant]
     Dosage: 10 MG, AS NEEDED

REACTIONS (4)
  - DIZZINESS [None]
  - FEBRILE NEUTROPENIA [None]
  - MALIGNANT NEOPLASM PROGRESSION [None]
  - NAUSEA [None]
